FAERS Safety Report 18627679 (Version 1)
Quarter: 2020Q4

REPORT INFORMATION
  Report Type: Spontaneous
  Country: US (occurrence: US)
  Receive Date: 20201216
  Receipt Date: 20201216
  Transmission Date: 20210114
  Serious: Yes (Other)
  Sender: FDA-Public Use
  Company Number: None

PATIENT
  Age: 68 Year
  Sex: Female
  Weight: 44.45 kg

DRUGS (1)
  1. BAMLANIVIMAB 200MG/20ML [Suspect]
     Active Substance: BAMLANIVIMAB
     Indication: COVID-19
     Dosage: ?          OTHER DOSE:700 MG IN 200 ML;?
     Route: 042
     Dates: start: 20201210, end: 20201210

REACTIONS (4)
  - Therapy change [None]
  - Dizziness [None]
  - Syncope [None]
  - Infusion related reaction [None]

NARRATIVE: CASE EVENT DATE: 20201210
